FAERS Safety Report 7306392-8 (Version None)
Quarter: 2011Q1

REPORT INFORMATION
  Report Type: 
  Country: None (occurrence: None)
  Receive Date: 20110209
  Receipt Date: 20110124
  Transmission Date: 20110831
  Serious: Yes (Other)
  Sender: FDA-Public Use
  Company Number: 026131

PATIENT
  Sex: Female
  Weight: 84.1 kg

DRUGS (20)
  1. TENUATE DOSPAN [Concomitant]
  2. LECOTHYROXINE SODIUM [Concomitant]
  3. CERTOLIZUMAB PEGOL [Suspect]
     Indication: RHEUMATOID ARTHRITIS
     Dosage: (200 MG 1X/2 WEEKS SUBCUTANEOUS) (BLINDED REGIMEN)
     Route: 058
     Dates: start: 20100119, end: 20100413
  4. CERTOLIZUMAB PEGOL [Suspect]
     Indication: RHEUMATOID ARTHRITIS
     Dosage: (200 MG 1X/2 WEEKS SUBCUTANEOUS) (BLINDED REGIMEN)
     Route: 058
     Dates: start: 20091013
  5. TRIAMTERENE [Concomitant]
  6. CALTRATE + D /01721501/ [Concomitant]
  7. PREDNISONE [Concomitant]
  8. POTASSIUM [Concomitant]
  9. AMOXICILLIN [Concomitant]
  10. VITAMIN D [Concomitant]
  11. ACIPHEX [Concomitant]
  12. SENNA /00142201/ [Concomitant]
  13. TYLENOL ACHES AND STRAINS MEDICATION [Concomitant]
  14. RESTASIS [Concomitant]
  15. ACTONEL [Concomitant]
  16. BENADRYL [Concomitant]
  17. FLOVENT HFA [Concomitant]
  18. VITAMIN B12 NOS [Concomitant]
  19. FOLIC ACID [Concomitant]
  20. VENTOLIN HFA [Concomitant]

REACTIONS (4)
  - MENINGIOMA [None]
  - RADICULOPATHY [None]
  - CEREBROVASCULAR DISORDER [None]
  - MUSCULAR WEAKNESS [None]
